FAERS Safety Report 5845907-3 (Version None)
Quarter: 2008Q3

REPORT INFORMATION
  Report Type: 
  Country: None (occurrence: None)
  Receive Date: 20080814
  Receipt Date: 20080806
  Transmission Date: 20090109
  Serious: No
  Sender: FDA-Public Use
  Company Number: US-ELI_LILLY_AND_COMPANY-US200805004082

PATIENT
  Sex: Male

DRUGS (2)
  1. HUMALOG [Suspect]
     Indication: DIABETES MELLITUS
     Dates: start: 20020101
  2. HUMULIN R [Suspect]
     Indication: DIABETES MELLITUS
     Dates: start: 20080401

REACTIONS (6)
  - CONJUNCTIVITIS [None]
  - EYE INFLAMMATION [None]
  - EYE IRRITATION [None]
  - EYE PAIN [None]
  - OCULAR HYPERAEMIA [None]
  - VISUAL ACUITY REDUCED [None]
